FAERS Safety Report 16643041 (Version 1)
Quarter: 2019Q3

REPORT INFORMATION
  Report Type: Spontaneous
  Country: US (occurrence: US)
  Receive Date: 20190729
  Receipt Date: 20190729
  Transmission Date: 20191004
  Serious: No
  Sender: FDA-Public Use
  Company Number: US-MYLANLABS-2019M1067132

PATIENT
  Age: 87 Year
  Sex: Female
  Weight: 66 kg

DRUGS (1)
  1. WIXELA INHUB [Suspect]
     Active Substance: FLUTICASONE PROPIONATE\SALMETEROL XINAFOATE
     Indication: ASTHMA
     Dosage: TWICE A DAY 1 PUFF
     Route: 055
     Dates: start: 20190712

REACTIONS (6)
  - Oropharyngeal discomfort [Recovered/Resolved]
  - Device use issue [Unknown]
  - Accidental overdose [Recovered/Resolved]
  - Chest discomfort [Recovered/Resolved]
  - Therapeutic product effect increased [Recovered/Resolved]
  - Product dose omission [Not Recovered/Not Resolved]

NARRATIVE: CASE EVENT DATE: 20190712
